APPROVED DRUG PRODUCT: OPIPZA
Active Ingredient: ARIPIPRAZOLE
Strength: 5MG
Dosage Form/Route: FILM;ORAL
Application: N216655 | Product #002
Applicant: XIAMEN LP PHARMACUETICAL CO LTD
Approved: Jul 22, 2024 | RLD: Yes | RS: No | Type: RX

PATENTS:
Patent 11331315 | Expires: Nov 3, 2040
Patent 11701352 | Expires: Dec 15, 2041